FAERS Safety Report 17173347 (Version 2)
Quarter: 2020Q1

REPORT INFORMATION
  Report Type: Report from Study
  Country: US (occurrence: US)
  Receive Date: 20191219
  Receipt Date: 20200204
  Transmission Date: 20200409
  Serious: Yes (Other)
  Sender: FDA-Public Use
  Company Number: NVSC2019US073231

PATIENT
  Age: 62 Year
  Sex: Male

DRUGS (1)
  1. ENTRESTO [Suspect]
     Active Substance: SACUBITRIL\VALSARTAN
     Indication: CARDIAC FAILURE
     Dosage: UNK, BID
     Route: 048

REACTIONS (4)
  - Atrial fibrillation [Unknown]
  - Cerebrovascular accident [Unknown]
  - Dizziness [Unknown]
  - Myocardial infarction [Unknown]
